FAERS Safety Report 17863561 (Version 1)
Quarter: 2020Q2

REPORT INFORMATION
  Report Type: Report from Study
  Country: None (occurrence: US)
  Receive Date: 20200605
  Receipt Date: 20200605
  Transmission Date: 20200714
  Serious: No
  Sender: FDA-Public Use
  Company Number: US-US WORLDMEDS, LLC-USW201909-001730

PATIENT
  Age: 72 Year
  Sex: Male
  Weight: 71.66 kg

DRUGS (13)
  1. TYLENOL [Concomitant]
     Active Substance: ACETAMINOPHEN
  2. TESTOSTERONE. [Concomitant]
     Active Substance: TESTOSTERONE
  3. APOKYN [Suspect]
     Active Substance: APOMORPHINE HYDROCHLORIDE
     Indication: PARKINSON^S DISEASE
     Route: 058
     Dates: start: 20170109
  4. CARBIDOPA/LEVODOPA [Concomitant]
     Active Substance: CARBIDOPA\LEVODOPA
  5. ENTACAPONE. [Concomitant]
     Active Substance: ENTACAPONE
  6. MELATONIN [Concomitant]
     Active Substance: MELATONIN
  7. AZILECT [Concomitant]
     Active Substance: RASAGILINE MESYLATE
  8. CIALIS [Concomitant]
     Active Substance: TADALAFIL
  9. CARBIDOPA/LEVODOPA [Concomitant]
     Active Substance: CARBIDOPA\LEVODOPA
  10. ZYRTEC OTC [Concomitant]
  11. PRESERVISION [Concomitant]
     Active Substance: MINERALS\VITAMINS
  12. SINGULAIR [Concomitant]
     Active Substance: MONTELUKAST SODIUM
  13. NEURONTIN [Concomitant]
     Active Substance: GABAPENTIN

REACTIONS (2)
  - Somnolence [Recovered/Resolved]
  - Yawning [Recovered/Resolved]

NARRATIVE: CASE EVENT DATE: 20170109
